FAERS Safety Report 24341089 (Version 7)
Quarter: 2025Q4

REPORT INFORMATION
  Report Type: Report from Study
  Country: US (occurrence: US)
  Receive Date: 20240919
  Receipt Date: 20251022
  Transmission Date: 20260117
  Serious: Yes (Other)
  Sender: NOVARTIS
  Company Number: US-002147023-NVSC2024US186326

PATIENT
  Sex: Female

DRUGS (5)
  1. KISQALI [Suspect]
     Active Substance: RIBOCICLIB SUCCINATE
     Indication: Breast cancer
     Dosage: 3 DOSAGE FORM, OTHER, (600MG) BY MOUTH DAILY FOR 21 DAYS FOLLOWED BY 7 DAYS OFF
     Route: 048
     Dates: start: 20240416
  2. KISQALI [Suspect]
     Active Substance: RIBOCICLIB SUCCINATE
     Dosage: 600 MG, QD
     Route: 048
     Dates: start: 20240501
  3. KISQALI [Suspect]
     Active Substance: RIBOCICLIB SUCCINATE
     Dosage: 600 MG, QD (DAILY FOR 21 DAYS ON, FOLLOWED BY 7 DAYS OFF)
     Route: 048
  4. KISQALI [Suspect]
     Active Substance: RIBOCICLIB SUCCINATE
     Dosage: 3 DOSAGE FORM, OTHER, TAKE 3 TABLETS (600MG) BY MOUTH EVERY MORNING AS DIRECTED
     Route: 048
     Dates: start: 20241223
  5. KISQALI [Suspect]
     Active Substance: RIBOCICLIB SUCCINATE
     Dosage: UNK
     Route: 065

REACTIONS (7)
  - Genital abscess [Unknown]
  - Alopecia [Unknown]
  - Dry skin [Unknown]
  - Diarrhoea [Unknown]
  - Memory impairment [Unknown]
  - Product temperature excursion issue [Unknown]
  - Circumstance or information capable of leading to medication error [Unknown]
